FAERS Safety Report 5501061-9 (Version None)
Quarter: 2007Q4

REPORT INFORMATION
  Report Type: 
  Country: None (occurrence: None)
  Receive Date: 20071029
  Receipt Date: 20071017
  Transmission Date: 20080405
  Serious: Yes (Other)
  Sender: FDA-Public Use
  Company Number: GB-PFIZER INC-2007084888

PATIENT
  Sex: Female

DRUGS (2)
  1. NICOTINE [Suspect]
     Indication: SMOKING CESSATION THERAPY
     Route: 055
  2. NICORETTE MICROTAB [Suspect]
     Indication: SMOKING CESSATION THERAPY
     Route: 060
     Dates: start: 19980701, end: 19980701

REACTIONS (2)
  - DIZZINESS [None]
  - NEOPLASM MALIGNANT [None]
